FAERS Safety Report 17994344 (Version 1)
Quarter: 2020Q3

REPORT INFORMATION
  Report Type: Spontaneous
  Country: US (occurrence: US)
  Receive Date: 20200708
  Receipt Date: 20200708
  Transmission Date: 20201103
  Serious: Yes (Death)
  Sender: FDA-Public Use
  Company Number: None

PATIENT
  Age: 67 Year
  Sex: Male

DRUGS (9)
  1. CAPECITABINE, 500MG [Suspect]
     Active Substance: CAPECITABINE
     Indication: COLORECTAL CANCER
     Route: 048
     Dates: start: 20200228, end: 20200703
  2. ROSUVASTATIN 20MG [Concomitant]
     Active Substance: ROSUVASTATIN
  3. ALLOPURINOL 100MG [Concomitant]
     Active Substance: ALLOPURINOL
  4. LISINOPRIL. [Concomitant]
     Active Substance: LISINOPRIL
  5. BUPROPION SR 150MG [Concomitant]
     Active Substance: BUPROPION
  6. GABAPENTIN 600MG [Concomitant]
     Active Substance: GABAPENTIN
  7. AMLODIPINE [Concomitant]
     Active Substance: AMLODIPINE BESYLATE
  8. CAPECITABINE, 500MG [Suspect]
     Active Substance: CAPECITABINE
     Indication: PROCTALGIA
     Route: 048
     Dates: start: 20200228, end: 20200703
  9. BUPROPION XL [Concomitant]
     Active Substance: BUPROPION

REACTIONS (1)
  - Death [None]

NARRATIVE: CASE EVENT DATE: 20200703
